FAERS Safety Report 12475651 (Version 2)
Quarter: 2016Q2

REPORT INFORMATION
  Report Type: Spontaneous
  Country: RE (occurrence: FR)
  Receive Date: 20160617
  Receipt Date: 20160617
  Transmission Date: 20160815
  Serious: Yes (Death, Life-Threatening, Hospitalization, Other)
  Sender: FDA-Public Use
  Company Number: FR-BIOVITRUM-2016FR0426

PATIENT
  Sex: Female

DRUGS (7)
  1. DOBUTAMINE [Concomitant]
     Active Substance: DOBUTAMINE\DOBUTAMINE HYDROCHLORIDE
  2. ORAL STEROIDS [Concomitant]
     Active Substance: UNSPECIFIED INGREDIENT
     Indication: STILL^S DISEASE ADULT ONSET
     Route: 048
  3. METHOTREXATE [Concomitant]
     Active Substance: METHOTREXATE
     Indication: STILL^S DISEASE ADULT ONSET
  4. TADALAFIL [Concomitant]
     Active Substance: TADALAFIL
  5. AMBRISENTAN [Concomitant]
     Active Substance: AMBRISENTAN
  6. PROSTACYCLINE [Concomitant]
     Route: 042
  7. KINERET [Suspect]
     Active Substance: ANAKINRA
     Indication: STILL^S DISEASE ADULT ONSET

REACTIONS (6)
  - Staphylococcal infection [Fatal]
  - Thrombotic thrombocytopenic purpura [Unknown]
  - Off label use [Unknown]
  - Septic shock [Fatal]
  - Right ventricular failure [Unknown]
  - Pulmonary arterial hypertension [Unknown]
